FAERS Safety Report 6703941-5 (Version None)
Quarter: 2010Q2

REPORT INFORMATION
  Report Type: 
  Country: None (occurrence: None)
  Receive Date: 20100430
  Receipt Date: 20100421
  Transmission Date: 20101027
  Serious: Yes (Hospitalization, Other)
  Sender: FDA-Public Use
  Company Number: US-PFIZER INC-2010051312

PATIENT
  Sex: Female
  Weight: 63.492 kg

DRUGS (8)
  1. DILANTIN [Suspect]
     Dosage: 200MG TWICE A DAY ON MON., SAT., SUN. + 200MG IN AM AND 100MG IN PM OTHER WEEKDAYS
     Route: 048
     Dates: start: 19750101
  2. PHENOBARBITAL TAB [Concomitant]
     Dosage: UNK
  3. BUSPAR [Concomitant]
     Dosage: UNK
  4. FOLIC ACID [Concomitant]
     Dosage: UNK
  5. CALCITRIOL [Concomitant]
     Dosage: UNK
  6. VITAMIN D3 [Concomitant]
     Dosage: UNK
  7. VITAMIN B COMPLEX CAP [Concomitant]
     Dosage: UNK
  8. CALTRATE [Concomitant]
     Dosage: UNK

REACTIONS (6)
  - COORDINATION ABNORMAL [None]
  - DRUG INEFFECTIVE [None]
  - DRUG LEVEL FLUCTUATING [None]
  - DRUG TOXICITY [None]
  - FALL [None]
  - TOOTH INJURY [None]
